FAERS Safety Report 25026797 (Version 2)
Quarter: 2025Q1

REPORT INFORMATION
  Report Type: Spontaneous
  Country: US (occurrence: US)
  Receive Date: 20250301
  Receipt Date: 20250312
  Transmission Date: 20250409
  Serious: Yes (Other)
  Sender: SANOFI AVENTIS
  Company Number: US-SA-2025SA054787

PATIENT
  Age: 16 Year
  Sex: Male
  Weight: 59.2 kg

DRUGS (1)
  1. ALTUVIIIO [Suspect]
     Active Substance: EFANESOCTOCOG ALFA
     Indication: Factor VIII deficiency
     Dosage: 50 IU/KG, QW
     Route: 042
     Dates: start: 20240725, end: 20250218

REACTIONS (11)
  - Anti factor VIII antibody positive [Not Recovered/Not Resolved]
  - Influenza [Recovered/Resolved]
  - Respiratory tract congestion [Recovered/Resolved]
  - Cough [Recovered/Resolved]
  - Fatigue [Recovered/Resolved]
  - Haemorrhage [Recovered/Resolved]
  - Ecchymosis [Unknown]
  - Peripheral swelling [Not Recovered/Not Resolved]
  - Contusion [Not Recovered/Not Resolved]
  - Soft tissue haemorrhage [Unknown]
  - Joint swelling [Unknown]

NARRATIVE: CASE EVENT DATE: 20250113
